FAERS Safety Report 23100364 (Version 1)
Quarter: 2023Q4

REPORT INFORMATION
  Report Type: Spontaneous
  Country: US (occurrence: US)
  Receive Date: 20231024
  Receipt Date: 20231024
  Transmission Date: 20240110
  Serious: Yes (Death, Life-Threatening, Hospitalization, Other)
  Sender: FDA-Public Use
  Company Number: US-drreddys-SPO/USA/23/0180221

PATIENT
  Age: 42 Year
  Sex: Female

DRUGS (1)
  1. AMLODIPINE [Suspect]
     Active Substance: AMLODIPINE BESYLATE
     Indication: Product used for unknown indication
     Dosage: 52 PILLS
     Route: 048

REACTIONS (10)
  - Distributive shock [Fatal]
  - Cardiogenic shock [Fatal]
  - Brain injury [Fatal]
  - Non-cardiogenic pulmonary oedema [Fatal]
  - Cardiac arrest [Fatal]
  - Hypoxia [Fatal]
  - Lactic acidosis [Fatal]
  - Toxicity to various agents [Fatal]
  - Suicide attempt [Fatal]
  - Intentional overdose [Fatal]
